FAERS Safety Report 16969462 (Version 1)
Quarter: 2019Q4

REPORT INFORMATION
  Report Type: Spontaneous
  Country: PL (occurrence: PL)
  Receive Date: 20191029
  Receipt Date: 20191029
  Transmission Date: 20200122
  Serious: Yes (Hospitalization, Other)
  Sender: FDA-Public Use
  Company Number: PL-SA-2019SA292470

PATIENT
  Age: 18 Month
  Sex: Male

DRUGS (11)
  1. THYMOGLOBULIN [Suspect]
     Active Substance: LAPINE T-LYMPHOCYTE IMMUNE GLOBULIN
     Indication: IMMUNE ENHANCEMENT THERAPY
     Dosage: 2.5 MG/KG, QD (DAYS -3 TO -1)
  2. INSULIN [Concomitant]
     Active Substance: INSULIN NOS
     Indication: TYPE 1 DIABETES MELLITUS
  3. RITUXIMAB. [Concomitant]
     Active Substance: RITUXIMAB
     Dosage: 375 MG/M2, QW (4 DOSES )
  4. FILGRASTIM [Concomitant]
     Active Substance: FILGRASTIM
     Dosage: DAY +6 POST TRANSPLANT
  5. METHYLPREDNISOLONE. [Suspect]
     Active Substance: METHYLPREDNISOLONE
     Indication: IMMUNOSUPPRESSANT DRUG THERAPY
     Dosage: 1 MG/KG, QD
  6. SIROLIMUS. [Concomitant]
     Active Substance: SIROLIMUS
     Dosage: UNK UNK, QD
  7. THIOTEPA. [Suspect]
     Active Substance: THIOTEPA
     Indication: BONE MARROW CONDITIONING REGIMEN
     Dosage: 2 X 5 MG/KG (DAY -2)
  8. CYCLOSPORIN [Concomitant]
     Active Substance: CYCLOSPORINE
  9. CYCLOSPORIN A [Suspect]
     Active Substance: CYCLOSPORINE
     Indication: IMMUNOSUPPRESSANT DRUG THERAPY
     Dosage: 2X 1.5 MG/KG
  10. TREOSULFAN [Suspect]
     Active Substance: TREOSULFAN
     Indication: BONE MARROW CONDITIONING REGIMEN
     Dosage: 12 G/M2 FOR 3 DAYS (DAYS -6 TO -4),
  11. FLUDARABINE PHOSPHATE. [Suspect]
     Active Substance: FLUDARABINE PHOSPHATE
     Indication: BONE MARROW CONDITIONING REGIMEN
     Dosage: 30 MG/M2 FOR 5 DAYS (DAYS -7 TO -3)

REACTIONS (5)
  - Hyperglycaemia [Unknown]
  - Drug ineffective [Not Recovered/Not Resolved]
  - Mucosal inflammation [Unknown]
  - Transplant rejection [Not Recovered/Not Resolved]
  - Pyrexia [Not Recovered/Not Resolved]
